FAERS Safety Report 21056282 (Version 1)
Quarter: 2022Q3

REPORT INFORMATION
  Report Type: Spontaneous
  Country: US (occurrence: US)
  Receive Date: 20220708
  Receipt Date: 20220708
  Transmission Date: 20221026
  Serious: No
  Sender: FDA-Public Use
  Company Number: US-JNJFOC-20220701345

PATIENT
  Age: 51 Year
  Sex: Male
  Weight: 63.560 kg

DRUGS (1)
  1. RISPERDAL [Suspect]
     Active Substance: RISPERIDONE
     Indication: Anxiety
     Route: 065

REACTIONS (3)
  - Gynaecomastia [Unknown]
  - Breast pain [Unknown]
  - Adverse event [Unknown]
